FAERS Safety Report 16201263 (Version 2)
Quarter: 2022Q1

REPORT INFORMATION
  Report Type: Spontaneous
  Country: NL (occurrence: NL)
  Receive Date: 20190416
  Receipt Date: 20220214
  Transmission Date: 20220423
  Serious: Yes (Other)
  Sender: FDA-Public Use
  Company Number: NL-AUROBINDO-AUR-APL-2019-020021

PATIENT
  Sex: Male
  Weight: 90 kg

DRUGS (2)
  1. OXYCODONE [Suspect]
     Active Substance: OXYCODONE
     Indication: Perioperative analgesia
     Dosage: 5 MG, UNK
     Route: 048
     Dates: start: 20190123, end: 20190205
  2. OXYCODONE [Suspect]
     Active Substance: OXYCODONE
     Dosage: 10 MILLIGRAM, TWO TIMES A DAY
     Route: 048
     Dates: start: 20190123, end: 20190205

REACTIONS (6)
  - Mental impairment [Recovering/Resolving]
  - Tremor [Recovering/Resolving]
  - Circadian rhythm sleep disorder [Recovering/Resolving]
  - Nausea [Recovering/Resolving]
  - Hypoaesthesia [Recovering/Resolving]
  - Decreased appetite [Recovering/Resolving]
